FAERS Safety Report 9141078 (Version 1)
Quarter: 2013Q1

REPORT INFORMATION
  Report Type: Spontaneous
  Country: US (occurrence: US)
  Receive Date: 20130305
  Receipt Date: 20130305
  Transmission Date: 20140127
  Serious: Yes (Hospitalization)
  Sender: FDA-Public Use
  Company Number: US-B.I. PHARMACEUTICALS,INC./RIDGEFIELD-2013-BI-05550BP

PATIENT
  Age: 80 None
  Sex: Female

DRUGS (15)
  1. SPIRIVA [Suspect]
     Dosage: 18 MCG
     Route: 055
  2. SPIRIVA [Suspect]
     Route: 048
     Dates: start: 20130226, end: 20130226
  3. ADVAIR [Concomitant]
     Route: 055
  4. ALBUTEROL [Concomitant]
     Route: 055
  5. TEMAZEPAM [Concomitant]
     Route: 048
  6. HYDROCODONE [Concomitant]
     Route: 048
  7. AMLODIPINE [Concomitant]
     Indication: HYPERTENSION
     Dosage: 10 MG
     Route: 048
  8. BENAZEPRIL [Concomitant]
     Dosage: 40 MG
     Route: 048
  9. METOPROLOL [Concomitant]
     Dosage: 100 MG
     Route: 048
  10. JANUVIA [Concomitant]
     Indication: DIABETES MELLITUS
     Dosage: 50 MG
     Route: 048
  11. LORATADINE [Concomitant]
     Route: 048
  12. GLYPIZIDE [Concomitant]
     Indication: DIABETES MELLITUS
     Dosage: 10 MG
     Route: 048
  13. PRAVASTATIN [Concomitant]
     Route: 048
  14. WARFARIN [Concomitant]
     Route: 048
  15. VITAMIN D [Concomitant]
     Route: 048

REACTIONS (3)
  - Pneumonia [Recovered/Resolved]
  - Dysphonia [Not Recovered/Not Resolved]
  - Incorrect route of drug administration [Recovered/Resolved]
